FAERS Safety Report 12934045 (Version 1)
Quarter: 2016Q4

REPORT INFORMATION
  Report Type: Spontaneous
  Country: US (occurrence: US)
  Receive Date: 20161111
  Receipt Date: 20161111
  Transmission Date: 20170207
  Serious: Yes (Other)
  Sender: FDA-Public Use
  Company Number: US-SA-2016SA204654

PATIENT
  Age: 87 Year
  Sex: Female

DRUGS (2)
  1. AVAPRO [Suspect]
     Active Substance: IRBESARTAN
     Indication: BLOOD PRESSURE MEASUREMENT
     Route: 065
     Dates: start: 200904
  2. SYNTHROID [Concomitant]
     Active Substance: LEVOTHYROXINE SODIUM
     Dosage: 150 MCG

REACTIONS (6)
  - Glaucoma [Unknown]
  - Stress [Unknown]
  - Blindness unilateral [Unknown]
  - Impaired driving ability [Unknown]
  - Macular degeneration [Unknown]
  - Cataract [Unknown]
